FAERS Safety Report 9560927 (Version 1)
Quarter: 2013Q3

REPORT INFORMATION
  Report Type: Report from Study
  Country: US (occurrence: US)
  Receive Date: 20130927
  Receipt Date: 20130927
  Transmission Date: 20140515
  Serious: Yes (Hospitalization)
  Sender: FDA-Public Use
  Company Number: US-ROCHE-1278061

PATIENT
  Age: 79 Year
  Sex: Female
  Weight: 64.47 kg

DRUGS (15)
  1. ZELBORAF [Suspect]
     Indication: METASTATIC MALIGNANT MELANOMA
     Route: 065
     Dates: start: 20120726, end: 20121115
  2. ZELBORAF [Suspect]
     Route: 065
     Dates: start: 20130114
  3. AMLODIPINE BESYLATE [Concomitant]
     Route: 048
  4. ATIVAN [Concomitant]
     Dosage: THREE TIMES A DAY, PRN
     Route: 048
     Dates: start: 20130117
  5. CITALOPRAM [Concomitant]
     Route: 048
  6. FOLBEE [Concomitant]
     Route: 048
  7. LANTUS [Concomitant]
     Dosage: 8 UNITS (OF 100 UNITS/ML) AT BEDTIME
     Route: 058
     Dates: start: 20121115
  8. METOPROLOL TARTRATE [Concomitant]
     Route: 048
     Dates: start: 20121115
  9. OMEPRAZOLE [Concomitant]
     Route: 048
  10. PERCOCET [Concomitant]
     Dosage: 4 TO 6 HRS AS NEEDED
     Route: 048
     Dates: start: 20130225
  11. PLAVIX [Concomitant]
     Route: 048
     Dates: start: 20121115
  12. SIMVASTATIN [Concomitant]
     Dosage: AT BEDTIME
     Route: 048
  13. SODIUM BICARBONATE [Concomitant]
     Route: 048
     Dates: start: 20121115
  14. TEMAZEPAM [Concomitant]
     Dosage: AT BEDTIME AS NEEDED
     Route: 048
     Dates: start: 20121115
  15. ZOFRAN [Concomitant]
     Dosage: EVERY 8 HRS AS NEEDED
     Route: 048
     Dates: start: 20130118

REACTIONS (16)
  - Renal failure acute [Unknown]
  - Asthenia [Unknown]
  - Disease progression [Unknown]
  - Underdose [Unknown]
  - Lymphoedema [Unknown]
  - Skin discolouration [Unknown]
  - Local swelling [Unknown]
  - Fatigue [Unknown]
  - Weight decreased [Unknown]
  - Pleural effusion [Unknown]
  - Pain [Unknown]
  - Lymphadenopathy [Unknown]
  - Nausea [Unknown]
  - Vomiting [Unknown]
  - Drug intolerance [Unknown]
  - Local swelling [Unknown]
